FAERS Safety Report 18701958 (Version 1)
Quarter: 2021Q1

REPORT INFORMATION
  Report Type: Spontaneous
  Country: GB (occurrence: GB)
  Receive Date: 20210105
  Receipt Date: 20210105
  Transmission Date: 20210419
  Serious: Yes (Other)
  Sender: FDA-Public Use
  Company Number: GB-JNJFOC-20210102775

PATIENT
  Age: 40 Year
  Sex: Male

DRUGS (3)
  1. TREVICTA [Suspect]
     Active Substance: PALIPERIDONE PALMITATE
  2. TREVICTA [Suspect]
     Active Substance: PALIPERIDONE PALMITATE
  3. TREVICTA [Suspect]
     Active Substance: PALIPERIDONE PALMITATE
     Indication: SCHIZOPHRENIA
     Dosage: DRUG DOSAGE FORM :120
     Route: 030
     Dates: start: 201709, end: 201901

REACTIONS (2)
  - Intentional product misuse [Unknown]
  - Schizophrenia [Unknown]

NARRATIVE: CASE EVENT DATE: 201809
